FAERS Safety Report 20074703 (Version 1)
Quarter: 2021Q4

REPORT INFORMATION
  Report Type: Spontaneous
  Country: US (occurrence: None)
  Receive Date: 20211115
  Receipt Date: 20211115
  Transmission Date: 20220303
  Serious: No
  Sender: FDA-Public Use
  Company Number: None

PATIENT
  Age: 64 Year
  Sex: Female
  Weight: 73.94 kg

DRUGS (7)
  1. BONIVA [Suspect]
     Active Substance: IBANDRONATE SODIUM
     Indication: Osteoporosis
     Dosage: FREQUENCY : MONTHLY;?
     Route: 048
     Dates: start: 20210227, end: 20210724
  2. VALIUM [Concomitant]
     Active Substance: DIAZEPAM
  3. OMEPRAZOLE [Concomitant]
     Active Substance: OMEPRAZOLE
  4. PEPCID [Concomitant]
     Active Substance: FAMOTIDINE
  5. FLONASE [Concomitant]
     Active Substance: FLUTICASONE PROPIONATE
  6. VITAMIN C [Concomitant]
     Active Substance: ASCORBIC ACID
  7. VITAMIN B [Concomitant]
     Active Substance: VITAMIN B

REACTIONS (10)
  - Stomatitis [None]
  - Gastrooesophageal reflux disease [None]
  - Pain in extremity [None]
  - Decreased appetite [None]
  - Pain in jaw [None]
  - Scab [None]
  - Mouth swelling [None]
  - Gastric disorder [None]
  - Chest pain [None]
  - Ageusia [None]

NARRATIVE: CASE EVENT DATE: 20210301
